FAERS Safety Report 6011431-0 (Version None)
Quarter: 2008Q4

REPORT INFORMATION
  Report Type: 
  Country: None (occurrence: None)
  Receive Date: 20081218
  Receipt Date: 20010307
  Transmission Date: 20090506
  Serious: Yes (Death, Hospitalization)
  Sender: FDA-Public Use
  Company Number: US-ROCHE-252607

PATIENT
  Sex: Male

DRUGS (1)
  1. SORIATANE [Suspect]
     Indication: PITYRIASIS RUBRA PILARIS
     Route: 048
     Dates: start: 20000801, end: 20010101

REACTIONS (5)
  - BLOOD CREATININE INCREASED [None]
  - BLOOD UREA INCREASED [None]
  - CARDIAC FAILURE CONGESTIVE [None]
  - DEATH [None]
  - PROTEINURIA [None]
